FAERS Safety Report 17951899 (Version 1)
Quarter: 2020Q2

REPORT INFORMATION
  Report Type: Spontaneous
  Country: FR (occurrence: FR)
  Receive Date: 20200626
  Receipt Date: 20200626
  Transmission Date: 20200714
  Serious: Yes (Hospitalization)
  Sender: FDA-Public Use
  Company Number: FR-TEVA-2020-FR-1791461

PATIENT
  Age: 42 Year
  Sex: Female

DRUGS (2)
  1. EFFENTORA 400 MICROGRAMMES, COMPRIM? GINGIVAL [Suspect]
     Active Substance: FENTANYL CITRATE
     Indication: ANALGESIC INTERVENTION SUPPORTIVE THERAPY
     Dosage: 2 DOSAGE FORMS
     Route: 048
  2. DUROGESIC [Suspect]
     Active Substance: FENTANYL
     Indication: ANALGESIC INTERVENTION SUPPORTIVE THERAPY
     Dosage: 1 DOSAGE FORMS
     Route: 003

REACTIONS (2)
  - Dependence [Not Recovered/Not Resolved]
  - Hyperaesthesia [Recovering/Resolving]

NARRATIVE: CASE EVENT DATE: 2015
